FAERS Safety Report 20770425 (Version 1)
Quarter: 2022Q2

REPORT INFORMATION
  Report Type: Spontaneous
  Country: PL (occurrence: PL)
  Receive Date: 20220429
  Receipt Date: 20220429
  Transmission Date: 20220721
  Serious: No
  Sender: FDA-Public Use
  Company Number: PL-LUPIN PHARMACEUTICALS INC.-2022-06270

PATIENT
  Age: 44 Year
  Sex: Male

DRUGS (8)
  1. CEFTRIAXONE [Suspect]
     Active Substance: CEFTRIAXONE
     Indication: COVID-19 pneumonia
     Dosage: UNK
     Route: 065
     Dates: start: 202101
  2. DEXAMETHASONE [Suspect]
     Active Substance: DEXAMETHASONE
     Indication: COVID-19 pneumonia
     Dosage: UNK
     Route: 065
     Dates: start: 202101
  3. IBUPROFEN [Suspect]
     Active Substance: IBUPROFEN
     Indication: COVID-19 pneumonia
     Dosage: UNK
     Route: 065
     Dates: start: 202101
  4. OMEPRAZOLE [Suspect]
     Active Substance: OMEPRAZOLE
     Indication: COVID-19 pneumonia
     Dosage: UNK
     Route: 065
     Dates: start: 202101
  5. ACETAMINOPHEN [Suspect]
     Active Substance: ACETAMINOPHEN
     Indication: COVID-19 pneumonia
     Dosage: UNK
     Route: 065
     Dates: start: 202101
  6. TRAZODONE [Concomitant]
     Active Substance: TRAZODONE HYDROCHLORIDE
     Indication: Insomnia
     Dosage: UNK
     Route: 065
     Dates: start: 202101
  7. ESTAZOLAM [Concomitant]
     Active Substance: ESTAZOLAM
     Indication: Insomnia
     Dosage: UNK (RECEIVED TWICE)
     Route: 065
     Dates: start: 202101
  8. BISOPROLOL [Concomitant]
     Active Substance: BISOPROLOL
     Indication: Hypertension
     Dosage: UNK
     Route: 065

REACTIONS (1)
  - Off label use [Unknown]

NARRATIVE: CASE EVENT DATE: 20210101
